FAERS Safety Report 6328596-3 (Version None)
Quarter: 2009Q3

REPORT INFORMATION
  Report Type: 
  Country: None (occurrence: None)
  Receive Date: 20090824
  Receipt Date: 20090824
  Transmission Date: 20100115
  Serious: Yes (Death)
  Sender: FDA-Public Use
  Company Number: None

PATIENT
  Sex: Female

DRUGS (5)
  1. REVLIMID [Suspect]
     Indication: MULTIPLE MYELOMA
     Dosage: 5MG DAILY ORALLY
     Route: 048
     Dates: start: 20070901, end: 20071001
  2. FENTANYL TRANSDERMAL SYSTEM [Concomitant]
  3. LORAZEPAM [Concomitant]
  4. FLUOXETINE [Concomitant]
  5. TRAZODONE HCL [Concomitant]

REACTIONS (4)
  - DISEASE PROGRESSION [None]
  - FATIGUE [None]
  - MULTIPLE FRACTURES [None]
  - WHITE BLOOD CELL COUNT DECREASED [None]
